FAERS Safety Report 22325930 (Version 1)
Quarter: 2023Q2

REPORT INFORMATION
  Report Type: Spontaneous
  Country: US (occurrence: US)
  Receive Date: 20230516
  Receipt Date: 20230516
  Transmission Date: 20230721
  Serious: No
  Sender: FDA-Public Use
  Company Number: US-Sprout Pharmaceuticals, Inc.-2023SP000126

PATIENT
  Sex: Female
  Weight: 87.5 kg

DRUGS (2)
  1. ADDYI [Suspect]
     Active Substance: FLIBANSERIN
     Indication: Libido decreased
     Route: 048
  2. VALSARTAN [Concomitant]
     Active Substance: VALSARTAN
     Indication: Product used for unknown indication

REACTIONS (7)
  - Presyncope [Unknown]
  - Dizziness [Unknown]
  - Headache [Unknown]
  - Discomfort [Unknown]
  - Feeling abnormal [Unknown]
  - Feeling drunk [Unknown]
  - Somnolence [Unknown]
